FAERS Safety Report 15550849 (Version 2)
Quarter: 2018Q4

REPORT INFORMATION
  Report Type: Report from Study
  Country: GB (occurrence: GB)
  Receive Date: 20181025
  Receipt Date: 20181126
  Transmission Date: 20190205
  Serious: Yes (Life-Threatening, Hospitalization, Other)
  Sender: FDA-Public Use
  Company Number: PHHY2018GB136099

PATIENT
  Sex: Female
  Weight: 23 kg

DRUGS (5)
  1. FUROSEMIDE. [Concomitant]
     Active Substance: FUROSEMIDE
     Indication: POLYURIA
     Dosage: 10 MG, TID
     Route: 042
     Dates: start: 20171128, end: 20171201
  2. ROCURONIUM [Concomitant]
     Active Substance: ROCURONIUM BROMIDE
     Indication: PARALYSIS
     Dosage: 23 MG, UNK
     Route: 042
     Dates: start: 20171124
  3. SPIRONOLACTONE. [Concomitant]
     Active Substance: SPIRONOLACTONE
     Indication: POLYURIA
     Dosage: 25 MG, BID
     Route: 062
     Dates: start: 20171127, end: 20171201
  4. CHLORAL HYDRATE [Concomitant]
     Active Substance: CHLORAL HYDRATE
     Indication: SEDATION
     Dosage: 1.75 G, PRN
     Route: 062
     Dates: start: 20171123, end: 20171127
  5. OMNITROPE [Suspect]
     Active Substance: SOMATROPIN
     Indication: GROWTH HORMONE DEFICIENCY
     Dosage: 0.9 MG, QD, 10 MG/1.5 ML
     Route: 058
     Dates: start: 201602

REACTIONS (8)
  - Large intestinal obstruction [Recovered/Resolved]
  - Lung consolidation [Unknown]
  - Pneumonia pseudomonal [Recovered/Resolved]
  - Abdominal distension [Recovered/Resolved]
  - Respiratory failure [Recovering/Resolving]
  - Enterovirus infection [Recovered/Resolved]
  - Lower respiratory tract infection [Recovered/Resolved]
  - Rhinovirus infection [Recovered/Resolved]

NARRATIVE: CASE EVENT DATE: 201711
